FAERS Safety Report 4263740-3 (Version None)
Quarter: 2004Q1

REPORT INFORMATION
  Report Type: 
  Country: None (occurrence: None)
  Receive Date: 20040102
  Receipt Date: 20031224
  Transmission Date: 20041129
  Serious: Yes (Hospitalization)
  Sender: FDA-Public Use
  Company Number: 200313077FR

PATIENT
  Age: 16 Year
  Sex: Male

DRUGS (2)
  1. RODOGYL [Suspect]
     Indication: WISDOM TEETH REMOVAL
     Dosage: 4 U/DAY PO
     Route: 048
     Dates: start: 20030731, end: 20030805
  2. KETOPROFON [Suspect]
     Dosage: PO
     Route: 048
     Dates: start: 20030731, end: 20030804

REACTIONS (9)
  - AGGRESSION [None]
  - APATHY [None]
  - CONFUSIONAL STATE [None]
  - DECREASED APPETITE [None]
  - DIZZINESS [None]
  - FATIGUE [None]
  - SPEECH DISORDER [None]
  - SUICIDAL IDEATION [None]
  - TOXICOLOGIC TEST ABNORMAL [None]
